FAERS Safety Report 10883539 (Version 6)
Quarter: 2015Q4

REPORT INFORMATION
  Report Type: Report from Study
  Country: GB (occurrence: GB)
  Receive Date: 20150303
  Receipt Date: 20151009
  Transmission Date: 20160304
  Serious: Yes (Death)
  Sender: FDA-Public Use
  Company Number: PHHO2015GB003042

PATIENT
  Age: 47 Year
  Sex: Male

DRUGS (8)
  1. LDK378 [Suspect]
     Active Substance: CERITINIB
     Indication: NON-SMALL CELL LUNG CANCER
     Dosage: 750 MG, QD
     Route: 048
     Dates: start: 20150205, end: 20150224
  2. MOVELAT [Concomitant]
     Indication: PRODUCT USED FOR UNKNOWN INDICATION
     Dosage: 1 DF (1 TAB), QD
     Route: 048
  3. ATRIPLA [Suspect]
     Active Substance: EFAVIRENZ\EMTRICITABINE\TENOFOVIR DISOPROXIL FUMARATE
     Indication: PRODUCT USED FOR UNKNOWN INDICATION
     Route: 065
  4. ANTIPLAR [Concomitant]
     Indication: HIV INFECTION
     Dosage: 1 DF (1 TAB), QD
     Route: 065
  5. MORPHINE SULFATE/NALTREXONE HYDROCHLORIDE [Concomitant]
     Active Substance: MORPHINE SULFATE\NALTREXONE HYDROCHLORIDE
     Indication: PAIN
     Dosage: 10 MG, BID
     Route: 048
  6. METOCLOPRAMIDE. [Concomitant]
     Active Substance: METOCLOPRAMIDE
     Indication: PROPHYLAXIS
     Dosage: 10 MG, QD
     Route: 048
     Dates: start: 20150223
  7. SENNA [Concomitant]
     Active Substance: SENNA LEAF\SENNOSIDES\SENNOSIDES A AND B
     Indication: CONSTIPATION
     Dosage: 1 DF (1 TAB), QD
     Route: 048
  8. RANITIDINE [Concomitant]
     Active Substance: RANITIDINE\RANITIDINE HYDROCHLORIDE
     Indication: HYPERCHLORHYDRIA
     Dosage: QD
     Route: 048

REACTIONS (8)
  - Anaemia [Fatal]
  - Pericardial haemorrhage [Fatal]
  - Vomiting [Fatal]
  - Pericarditis malignant [Fatal]
  - Lactic acidosis [Fatal]
  - Acute kidney injury [Fatal]
  - Hepatic enzyme abnormal [Fatal]
  - Hypoglycaemia [Fatal]

NARRATIVE: CASE EVENT DATE: 20150216
